FAERS Safety Report 4615571-X (Version None)
Quarter: 2005Q1

REPORT INFORMATION
  Report Type: 
  Country: None (occurrence: None)
  Receive Date: 20050322
  Receipt Date: 20050315
  Transmission Date: 20050727
  Serious: Yes (Hospitalization)
  Sender: FDA-Public Use
  Company Number: BE-MERCK-0503USA02984

PATIENT
  Age: 74 Year
  Sex: Female

DRUGS (11)
  1. PRINIVIL [Suspect]
     Indication: HYPERTENSION
     Route: 048
  2. LITHIUM CARBONATE [Suspect]
     Route: 065
  3. ESCITALOPRAM OXALATE [Suspect]
     Route: 065
  4. LEVOMEPROMAZINE [Suspect]
     Route: 065
  5. LORMETAZEPAM [Concomitant]
     Route: 065
  6. METFORMIN [Concomitant]
     Route: 065
  7. REPAGLINIDE [Concomitant]
     Route: 065
  8. IRBESARTAN [Suspect]
     Route: 065
  9. FUROSEMIDE [Suspect]
     Route: 065
  10. SPIRONOLACTONE [Suspect]
     Route: 065
  11. DEXETIMIDE [Suspect]
     Indication: TREMOR
     Route: 065

REACTIONS (16)
  - AGITATION [None]
  - APATHY [None]
  - BLOOD CREATININE INCREASED [None]
  - CONFUSIONAL STATE [None]
  - CREATININE RENAL CLEARANCE DECREASED [None]
  - DEHYDRATION [None]
  - DIARRHOEA [None]
  - DRUG INTERACTION [None]
  - DYSARTHRIA [None]
  - LETHARGY [None]
  - MOTOR DYSFUNCTION [None]
  - OLIGURIA [None]
  - PERFORMANCE STATUS DECREASED [None]
  - SOMNOLENCE [None]
  - THERAPEUTIC AGENT TOXICITY [None]
  - TREMOR [None]
